FAERS Safety Report 9728211 (Version 1)
Quarter: 2013Q4

REPORT INFORMATION
  Report Type: Spontaneous
  Country: US (occurrence: US)
  Receive Date: 20131204
  Receipt Date: 20131204
  Transmission Date: 20140711
  Serious: Yes (Other)
  Sender: FDA-Public Use
  Company Number: US-JNJFOC-20131116443

PATIENT
  Age: 68 Year
  Sex: Female
  Weight: 58.97 kg

DRUGS (2)
  1. XARELTO [Suspect]
     Indication: THROMBOSIS
     Dosage: DAILY
     Route: 048
     Dates: start: 20130912
  2. METOPROLOL [Concomitant]
     Indication: PALPITATIONS
     Route: 048
     Dates: start: 20130912

REACTIONS (1)
  - Impaired healing [Not Recovered/Not Resolved]
